FAERS Safety Report 18056406 (Version 1)
Quarter: 2020Q3

REPORT INFORMATION
  Report Type: Spontaneous
  Country: CN (occurrence: CN)
  Receive Date: 20200722
  Receipt Date: 20200722
  Transmission Date: 20201103
  Serious: Yes (Life-Threatening, Other)
  Sender: FDA-Public Use
  Company Number: CN-ASTRAZENECA-2020SE91023

PATIENT
  Age: 25903 Day
  Sex: Male
  Weight: 65 kg

DRUGS (2)
  1. BUDESONIDE. [Suspect]
     Active Substance: BUDESONIDE
     Indication: BRONCHOSPASM
     Route: 055
     Dates: start: 20200708, end: 20200710
  2. TERBUTALINE SULFATE. [Suspect]
     Active Substance: TERBUTALINE SULFATE
     Indication: BRONCHOSPASM
     Route: 055
     Dates: start: 20200708, end: 20200710

REACTIONS (5)
  - Dyspnoea [Recovered/Resolved]
  - Agitation [Unknown]
  - Discomfort [Unknown]
  - Asphyxia [Recovered/Resolved]
  - Asthma [Recovered/Resolved]

NARRATIVE: CASE EVENT DATE: 20200710
